FAERS Safety Report 4374120-4 (Version None)
Quarter: 2004Q2

REPORT INFORMATION
  Report Type: 
  Country: None (occurrence: None)
  Receive Date: 20040608
  Receipt Date: 20040608
  Transmission Date: 20050107
  Serious: Yes (Hospitalization)
  Sender: FDA-Public Use
  Company Number: None

PATIENT
  Age: 69 Year
  Sex: Male
  Weight: 74 kg

DRUGS (4)
  1. CISPLATIN [Suspect]
     Indication: GASTRIC CANCER
     Dosage: 54 MG WKLY IV
     Route: 042
     Dates: start: 20040511
  2. CISPLATIN [Suspect]
     Indication: GASTRIC CANCER
     Dosage: 54 MG WKLY IV
     Route: 042
     Dates: start: 20040518
  3. IRINOTECAN [Suspect]
     Indication: GASTRIC CANCER
     Dosage: 118 MG WKLY IV
     Route: 042
     Dates: start: 20040511
  4. IRINOTECAN [Suspect]
     Indication: GASTRIC CANCER
     Dosage: 118 MG WKLY IV
     Route: 042
     Dates: start: 20040518

REACTIONS (2)
  - CAROTID ARTERY STENOSIS [None]
  - CEREBRAL ARTERY OCCLUSION [None]
